FAERS Safety Report 8126205-4 (Version None)
Quarter: 2012Q1

REPORT INFORMATION
  Report Type: 
  Country: None (occurrence: None)
  Receive Date: 20120209
  Receipt Date: 20120203
  Transmission Date: 20120608
  Serious: Yes (Other)
  Sender: FDA-Public Use
  Company Number: PHEH2012US003047

PATIENT
  Age: 90 Year
  Sex: Female

DRUGS (2)
  1. PLAVIX [Concomitant]
  2. DIOVAN [Suspect]
     Dosage: 160 MG, PER DAY

REACTIONS (3)
  - HYPOTENSION [None]
  - CEREBROVASCULAR ACCIDENT [None]
  - COUGH [None]
